FAERS Safety Report 6061857-4 (Version None)
Quarter: 2009Q1

REPORT INFORMATION
  Report Type: 
  Country: None (occurrence: None)
  Receive Date: 20090202
  Receipt Date: 20090122
  Transmission Date: 20090719
  Serious: Yes (Other)
  Sender: FDA-Public Use
  Company Number: US-GILEAD-2008-0015878

PATIENT
  Sex: Male
  Weight: 3.632 kg

DRUGS (2)
  1. VIREAD [Suspect]
     Route: 064
     Dates: start: 20070701, end: 20080325
  2. TYZEKA [Concomitant]
     Route: 064
     Dates: start: 20070501

REACTIONS (1)
  - VENTRICULAR SEPTAL DEFECT [None]
